FAERS Safety Report 24569303 (Version 1)
Quarter: 2024Q4

REPORT INFORMATION
  Report Type: Spontaneous
  Country: US (occurrence: None)
  Receive Date: 20241030
  Receipt Date: 20241030
  Transmission Date: 20250115
  Serious: Yes (Hospitalization)
  Sender: Public
  Company Number: None

PATIENT
  Age: 65 Year
  Sex: Female

DRUGS (1)
  1. TALQUETAMAB [Suspect]
     Active Substance: TALQUETAMAB
     Indication: Plasma cell myeloma
     Dates: start: 20241014

REACTIONS (3)
  - Liver injury [None]
  - Cytokine release syndrome [None]
  - Inappropriate schedule of product administration [None]

NARRATIVE: CASE EVENT DATE: 20241019
